FAERS Safety Report 8786014 (Version 2)
Quarter: 2012Q4

REPORT INFORMATION
  Report Type: 
  Country: US (occurrence: US)
  Receive Date: 20120914
  Receipt Date: 20120920
  Transmission Date: 20130627
  Serious: Yes (Death, Hospitalization)
  Sender: FDA-Public Use
  Company Number: US-B.I. PHARMACEUTICALS,INC./RIDGEFIELD-2012-BP-22488BP

PATIENT
  Sex: Female

DRUGS (8)
  1. PRADAXA [Suspect]
     Indication: CEREBROVASCULAR ACCIDENT PROPHYLAXIS
     Dosage: 300 mg
     Dates: end: 201207
  2. PRADAXA [Suspect]
     Indication: ATRIAL FIBRILLATION
  3. ASPIRIN [Concomitant]
     Dosage: 80 mg
  4. LEVOTHYROXINE [Concomitant]
     Dosage: 50 mcg
  5. AMITRIPTYLINE [Concomitant]
     Dosage: 25 mg
  6. PRILOSEC [Concomitant]
     Dosage: 20 mg
  7. LASIX [Concomitant]
     Dosage: 20 mg
  8. ZYLOPRIM [Concomitant]

REACTIONS (3)
  - Renal failure acute [Fatal]
  - Transient ischaemic attack [Recovered/Resolved]
  - Gastrointestinal haemorrhage [Recovered/Resolved]
